FAERS Safety Report 13719764 (Version 2)
Quarter: 2017Q3

REPORT INFORMATION
  Report Type: Report from Study
  Country: US (occurrence: US)
  Receive Date: 20170705
  Receipt Date: 20170731
  Transmission Date: 20171127
  Serious: Yes (Hospitalization, Other)
  Sender: FDA-Public Use
  Company Number: US-GILEAD-2017-0280984

PATIENT
  Age: 10 Year
  Sex: Female
  Weight: 43 kg

DRUGS (28)
  1. PROVENTIL [Concomitant]
     Active Substance: ALBUTEROL
     Dosage: 2.5 MG/3 ML (0.083 PERCENT); 3 ML QID BY NEBULIZATION
     Route: 055
  2. CIPRO [Concomitant]
     Active Substance: CIPROFLOXACIN HYDROCHLORIDE
     Dosage: 750 MG, BID
     Route: 048
  3. CATAPRES                           /00171101/ [Concomitant]
     Active Substance: CLONIDINE
     Dosage: 0.1 MG, QD
     Route: 048
  4. ZENPEP [Concomitant]
     Active Substance: PANCRELIPASE AMYLASE\PANCRELIPASE LIPASE\PANCRELIPASE PROTEASE
     Dosage: 4 CAPSULES WITH MEALS AND 2-3 WITH SNACKS 14 DAILY
  5. MULTIVITAMIN                       /00097801/ [Concomitant]
     Active Substance: VITAMINS
     Dosage: 1 DF, QD
     Route: 048
  6. NUTREN 1.0 [Concomitant]
     Dosage: 1 DF, QD
     Route: 048
  7. TOBRAMYCIN. [Concomitant]
     Active Substance: TOBRAMYCIN
     Dosage: 28 MG, 4 CAPSULES INTO THE LUNGS BID ON 28 DAYS AND OFF 28 DAYS
     Route: 055
  8. MIRALAX [Concomitant]
     Active Substance: POLYETHYLENE GLYCOL 3350
     Indication: CONSTIPATION
     Dosage: 17 GM DAILY AS NEEDED
  9. ADVAIR HFA [Concomitant]
     Active Substance: FLUTICASONE PROPIONATE\SALMETEROL XINAFOATE
     Dosage: 500-50 MCG/DOSE, INHALE 1 PUFF INTO LUNGS Q12HR
     Route: 045
  10. SINGULAIR [Concomitant]
     Active Substance: MONTELUKAST SODIUM
     Dosage: 5 MG, QHS
     Route: 048
  11. PULMOZYME [Concomitant]
     Active Substance: DORNASE ALFA
     Dosage: 1 MG/ML; 2.5 ML, QD
     Route: 055
  12. CONCERTA [Concomitant]
     Active Substance: METHYLPHENIDATE HYDROCHLORIDE
     Dosage: 27 MG, QD EVERY MORNING
     Route: 048
  13. SODIUM CHLORIDE. [Concomitant]
     Active Substance: SODIUM CHLORIDE
     Dosage: 7 PERCENT, 4 MLS BY NEBULIZATION BID WITH VEST TREATMENTS
     Route: 055
  14. EPINEPHRINE. [Concomitant]
     Active Substance: EPINEPHRINE
     Indication: ANAPHYLACTIC REACTION
     Dosage: 0.3 MG/0.3 ML; 0.3 ML INTO MUSCLE ONCE AS NEEDED FOR UP TO 1 DOSE
  15. ERGOCALCIFEROL. [Concomitant]
     Active Substance: ERGOCALCIFEROL
     Dosage: 50000 UNITS; 1 CAPSULE Q1WK
     Route: 048
  16. ALLEGRA [Concomitant]
     Active Substance: FEXOFENADINE HYDROCHLORIDE
     Dosage: 60 MG, 1 TABLET VIA G TUBE QD
  17. RISPERDAL [Concomitant]
     Active Substance: RISPERIDONE
     Dosage: 1 MG, 4 TABLETS QD
     Route: 048
  18. ZOLOFT [Concomitant]
     Active Substance: SERTRALINE HYDROCHLORIDE
     Dosage: 25 MG, QD VIA G TUBE
  19. AZTREONAM LYSINE [Suspect]
     Active Substance: AZTREONAM LYSINE
     Indication: CYSTIC FIBROSIS
     Dosage: 75 MG, UNK
     Route: 055
     Dates: start: 20150105
  20. PROAIR HFA [Concomitant]
     Active Substance: ALBUTEROL SULFATE
     Indication: COUGH
     Dosage: 90 MCG/ACTUATION; 2-4 PUFFS(INHALER) Q 4 HRS PRN
     Route: 055
  21. PROAIR HFA [Concomitant]
     Active Substance: ALBUTEROL SULFATE
     Indication: WHEEZING
  22. COLYMYCIN                          /00013206/ [Concomitant]
     Dosage: 150 MG, BID 28 DAYS ON, 28 DAYS OFF
     Route: 055
  23. DDAVP [Concomitant]
     Active Substance: DESMOPRESSIN ACETATE
     Dosage: Q
     Route: 048
  24. XOLAIR [Concomitant]
     Active Substance: OMALIZUMAB
     Indication: ASTHMA
     Dosage: 300 MG, EVERY 14 DAYS
     Route: 058
  25. PEPCID                             /00305201/ [Concomitant]
     Active Substance: ALUMINUM HYDROXIDE\MAGNESIUM CARBONATE
     Dosage: 20 MG, BID
     Route: 048
  26. AZTREONAM LYSINE [Suspect]
     Active Substance: AZTREONAM LYSINE
     Indication: PSEUDOMONAS INFECTION
  27. FLONASE                            /00908302/ [Concomitant]
     Active Substance: MOMETASONE FUROATE
     Dosage: 50 MCG/ACTUATION, 2 SPRAYS IN EACH NOSTRIL BID
     Route: 045
  28. MEDROL [Concomitant]
     Active Substance: METHYLPREDNISOLONE
     Dosage: 4 MG, FOR STEROID TAPER

REACTIONS (1)
  - Bronchopulmonary aspergillosis allergic [Recovered/Resolved]

NARRATIVE: CASE EVENT DATE: 20170601
